FAERS Safety Report 19044278 (Version 1)
Quarter: 2021Q1

REPORT INFORMATION
  Report Type: Other
  Country: TR (occurrence: TR)
  Receive Date: 20210323
  Receipt Date: 20210323
  Transmission Date: 20210420
  Serious: Yes (Other)
  Sender: FDA-Public Use
  Company Number: TR-ROCHE-2788911

PATIENT

DRUGS (6)
  1. HYDROXYCHLOROQUINE [Suspect]
     Active Substance: HYDROXYCHLOROQUINE
     Dosage: MAINTENANCE DOSE
     Route: 065
  2. AZITHROMYCIN ANHYDROUS. [Suspect]
     Active Substance: AZITHROMYCIN ANHYDROUS
     Indication: COVID-19
     Dosage: LOADING DOSE
     Route: 065
  3. OSELTAMIVIR [Suspect]
     Active Substance: OSELTAMIVIR
     Indication: COVID-19
     Route: 065
  4. LEVOFLOXACIN. [Suspect]
     Active Substance: LEVOFLOXACIN
     Indication: COVID-19
     Route: 065
  5. AZITHROMYCIN ANHYDROUS. [Suspect]
     Active Substance: AZITHROMYCIN ANHYDROUS
     Dosage: MAINTENANCE DOSE
     Route: 065
  6. HYDROXYCHLOROQUINE [Suspect]
     Active Substance: HYDROXYCHLOROQUINE
     Indication: COVID-19
     Dosage: LOADING DOSE
     Route: 065

REACTIONS (7)
  - Electrocardiogram T wave abnormal [Unknown]
  - Electrocardiogram QT prolonged [Unknown]
  - Off label use [Unknown]
  - Electrocardiogram QRS complex prolonged [Unknown]
  - Electrocardiogram PR prolongation [Unknown]
  - Electrocardiogram P wave abnormal [Unknown]
  - Drug interaction [Unknown]
